FAERS Safety Report 23642950 (Version 1)
Quarter: 2024Q1

REPORT INFORMATION
  Report Type: Spontaneous
  Country: US (occurrence: None)
  Receive Date: 20240315
  Receipt Date: 20240315
  Transmission Date: 20240410
  Serious: Yes (Other)
  Sender: FDA-Public Use
  Company Number: None

PATIENT
  Age: 5 Year
  Sex: Male
  Weight: 15.75 kg

DRUGS (1)
  1. DUPIXENT [Suspect]
     Active Substance: DUPILUMAB
     Indication: Eczema
     Dates: start: 20230402, end: 20230805

REACTIONS (4)
  - Skin exfoliation [None]
  - Stomatitis [None]
  - Eye inflammation [None]
  - Eye pruritus [None]

NARRATIVE: CASE EVENT DATE: 20230805
